FAERS Safety Report 23958983 (Version 2)
Quarter: 2024Q2

REPORT INFORMATION
  Report Type: Spontaneous
  Country: AU (occurrence: AU)
  Receive Date: 20240611
  Receipt Date: 20240625
  Transmission Date: 20240716
  Serious: Yes (Hospitalization, Other)
  Sender: FDA-Public Use
  Company Number: AU-ABBVIE-5788799

PATIENT
  Age: 80 Year
  Sex: Male
  Weight: 56 kg

DRUGS (21)
  1. LEUPROLIDE ACETATE [Suspect]
     Active Substance: ISOPROPYL ALCOHOL\LEUPROLIDE ACETATE
     Indication: Neoplasm malignant
     Route: 030
     Dates: start: 20221107
  2. VITAMIN B12 [Concomitant]
     Active Substance: CYANOCOBALAMIN
     Indication: Vitamin B12 deficiency
     Dates: start: 20210720
  3. Senega + Ammonia [Concomitant]
     Indication: Product used for unknown indication
     Dates: start: 20230711
  4. ASPIRIN [Concomitant]
     Active Substance: ASPIRIN
     Indication: Product used for unknown indication
     Dates: start: 1987
  5. CHLORAMPHENICOL [Concomitant]
     Active Substance: CHLORAMPHENICOL
     Indication: Product used for unknown indication
     Dates: start: 20230420
  6. BROMHEXINE HYDROCHLORIDE [Concomitant]
     Active Substance: BROMHEXINE HYDROCHLORIDE
     Indication: Product used for unknown indication
     Dates: start: 20230511
  7. AMMONIUM BICARBONATE [Concomitant]
     Active Substance: AMMONIUM BICARBONATE
     Indication: Product used for unknown indication
  8. CEPHALEXIN [Concomitant]
     Active Substance: CEPHALEXIN
     Indication: Prophylaxis
     Dates: start: 20231020
  9. MIRTAZAPINE [Concomitant]
     Active Substance: MIRTAZAPINE
     Indication: Dysgeusia
     Dates: start: 20231206
  10. FUROSEMIDE [Concomitant]
     Active Substance: FUROSEMIDE
     Indication: Oedema peripheral
     Dates: start: 20230428
  11. ABIRATERONE [Suspect]
     Active Substance: ABIRATERONE
     Indication: Prostate cancer
     Route: 048
     Dates: start: 20230105
  12. ABIRATERONE [Suspect]
     Active Substance: ABIRATERONE
     Indication: Prostate cancer
     Route: 048
  13. IBUPROFEN [Concomitant]
     Active Substance: IBUPROFEN
     Indication: Pain in extremity
     Dates: start: 20221201
  14. ABEMACICLIB [Suspect]
     Active Substance: ABEMACICLIB
     Indication: Prostate cancer
     Dosage: DURATION TEXT: 7 MONTHS 25 DAYS
     Route: 065
     Dates: start: 20230216, end: 20231010
  15. ABEMACICLIB [Suspect]
     Active Substance: ABEMACICLIB
     Indication: Prostate cancer
     Dosage: DURATION TEXT: 1 MONTH 26 DAYS
     Route: 065
     Dates: start: 20240102, end: 20240227
  16. ABEMACICLIB [Suspect]
     Active Substance: ABEMACICLIB
     Indication: Prostate cancer
     Dosage: PH3-ABEMACICLIB-MHSPC?DURATION TEXT: 28 DAYS
     Route: 065
     Dates: start: 20230104, end: 20230131
  17. ABEMACICLIB [Suspect]
     Active Substance: ABEMACICLIB
     Indication: Prostate cancer
     Dosage: DURATION TEXT: 28 DAYS
     Route: 065
     Dates: start: 20231107, end: 20231204
  18. ACETAMINOPHEN\CODEINE PHOSPHATE [Concomitant]
     Active Substance: ACETAMINOPHEN\CODEINE PHOSPHATE
     Indication: Product used for unknown indication
     Dates: start: 20221201
  19. HERBALS\POLYGALA SENEGA ROOT [Concomitant]
     Active Substance: HERBALS\POLYGALA SENEGA ROOT
     Indication: Cough
  20. GUAIFENESIN [Concomitant]
     Active Substance: GUAIFENESIN
     Indication: Product used for unknown indication
  21. PREDNISOLONE [Concomitant]
     Active Substance: PREDNISOLONE
     Indication: Retinal detachment
     Route: 048
     Dates: start: 20230420, end: 20230517

REACTIONS (10)
  - Retinal detachment [Recovering/Resolving]
  - Fall [Recovered/Resolved]
  - Fall [Recovered/Resolved]
  - Anaemia [Recovered/Resolved]
  - Blood creatinine increased [Recovered/Resolved]
  - Fatigue [Recovered/Resolved]
  - Fall [Recovered/Resolved]
  - Fall [Recovered/Resolved]
  - Anaemia [Not Recovered/Not Resolved]
  - Fatigue [Recovering/Resolving]

NARRATIVE: CASE EVENT DATE: 20230101
